FAERS Safety Report 10364407 (Version 2)
Quarter: 2014Q4

REPORT INFORMATION
  Report Type: Spontaneous
  Country: US (occurrence: US)
  Receive Date: 20140806
  Receipt Date: 20141014
  Transmission Date: 20150528
  Serious: Yes (Other)
  Sender: FDA-Public Use
  Company Number: US-UNITED THERAPEUTICS-UNT-2014-004893

PATIENT
  Age: 1 Year
  Sex: Male

DRUGS (2)
  1. REVATIO [Concomitant]
     Active Substance: SILDENAFIL CITRATE
     Indication: PRODUCT USED FOR UNKNOWN INDICATION
     Route: 065
  2. REMODULIN [Suspect]
     Active Substance: TREPROSTINIL
     Indication: COR PULMONALE CHRONIC
     Dosage: 0.020 ?G/KG, CONTINUING
     Route: 058
     Dates: start: 20140515

REACTIONS (6)
  - Injection site discharge [Recovered/Resolved]
  - Oxygen saturation decreased [Recovered/Resolved]
  - Infusion site erythema [Unknown]
  - Device issue [Unknown]
  - Drug dose omission [Unknown]
  - Infusion site swelling [Unknown]

NARRATIVE: CASE EVENT DATE: 2014
